FAERS Safety Report 16776500 (Version 1)
Quarter: 2019Q3

REPORT INFORMATION
  Report Type: Spontaneous
  Country: US (occurrence: US)
  Receive Date: 20190905
  Receipt Date: 20190905
  Transmission Date: 20191005
  Serious: Yes (Hospitalization)
  Sender: FDA-Public Use
  Company Number: US-JNJFOC-20190900795

PATIENT
  Age: 52 Year
  Sex: Female

DRUGS (1)
  1. INVOKANA [Suspect]
     Active Substance: CANAGLIFLOZIN
     Indication: DIABETES MELLITUS INADEQUATE CONTROL
     Dosage: 100 MG FOR FIRST 10 DAYS AND THEN STARTED WITH 300 MG
     Route: 048
     Dates: start: 20160511

REACTIONS (2)
  - Necrotising fasciitis [Unknown]
  - Sepsis [Unknown]

NARRATIVE: CASE EVENT DATE: 201903
